FAERS Safety Report 25247400 (Version 1)
Quarter: 2025Q2

REPORT INFORMATION
  Report Type: Spontaneous
  Country: US (occurrence: US)
  Receive Date: 20250428
  Receipt Date: 20250428
  Transmission Date: 20250716
  Serious: No
  Sender: MERCK SHARP & DOHME LLC
  Company Number: US-009507513-2271582

PATIENT
  Sex: Female

DRUGS (1)
  1. KEYTRUDA [Suspect]
     Active Substance: PEMBROLIZUMAB
     Indication: Vaginal cancer
     Route: 042

REACTIONS (2)
  - Thyroid hormones increased [Not Recovered/Not Resolved]
  - Pain [Not Recovered/Not Resolved]
